FAERS Safety Report 6059158-3 (Version None)
Quarter: 2009Q1

REPORT INFORMATION
  Report Type: 
  Country: None (occurrence: None)
  Receive Date: 20090130
  Receipt Date: 20090122
  Transmission Date: 20090719
  Serious: Yes (Death, Hospitalization)
  Sender: FDA-Public Use
  Company Number: GB-PFIZER INC-2009159324

PATIENT

DRUGS (1)
  1. EXUBERA [Suspect]
     Route: 055

REACTIONS (1)
  - SEPSIS [None]
